FAERS Safety Report 21945057 (Version 3)
Quarter: 2023Q1

REPORT INFORMATION
  Report Type: Spontaneous
  Country: AR (occurrence: AR)
  Receive Date: 20230202
  Receipt Date: 20230331
  Transmission Date: 20230418
  Serious: No
  Sender: FDA-Public Use
  Company Number: AR-PFIZER INC-PV202300017127

PATIENT
  Age: 13 Year
  Sex: Female

DRUGS (1)
  1. GENOTROPIN [Suspect]
     Active Substance: SOMATROPIN
     Dosage: 1.5 MG TO 2 MG, 7 TIMES PER WEEK
     Dates: start: 20191129

REACTIONS (3)
  - Device failure [Unknown]
  - Device mechanical issue [Unknown]
  - Poor quality device used [Unknown]
